FAERS Safety Report 11647996 (Version 1)
Quarter: 2015Q4

REPORT INFORMATION
  Report Type: Spontaneous
  Country: AU (occurrence: AU)
  Receive Date: 20151021
  Receipt Date: 20151021
  Transmission Date: 20160304
  Serious: Yes (Death, Other)
  Sender: FDA-Public Use
  Company Number: AU-AMGEN-AUSSP2015109325

PATIENT
  Sex: Male

DRUGS (2)
  1. RITUXIMAB [Concomitant]
     Active Substance: RITUXIMAB
  2. NPLATE [Suspect]
     Active Substance: ROMIPLOSTIM
     Indication: PRODUCT USED FOR UNKNOWN INDICATION
     Dosage: UNK
     Route: 065

REACTIONS (1)
  - Immunosuppression [Fatal]
